FAERS Safety Report 9844910 (Version 1)
Quarter: 2014Q1

REPORT INFORMATION
  Report Type: Spontaneous
  Country: US (occurrence: None)
  Receive Date: 20140123
  Receipt Date: 20140123
  Transmission Date: 20141002
  Serious: Yes (Life-Threatening, Hospitalization, Disabling)
  Sender: FDA-Public Use
  Company Number: None

PATIENT
  Age: 38 Year
  Sex: Female
  Weight: 64.86 kg

DRUGS (2)
  1. VENLAFAXINE [Suspect]
     Indication: DEPRESSION
  2. PRESTIQ [Suspect]
     Indication: DEPRESSION

REACTIONS (8)
  - Paraesthesia [None]
  - Hypoaesthesia [None]
  - Dysarthria [None]
  - Transient ischaemic attack [None]
  - Confusional state [None]
  - Chest pain [None]
  - Musculoskeletal stiffness [None]
  - Pharyngeal oedema [None]
